FAERS Safety Report 15754075 (Version 1)
Quarter: 2018Q4

REPORT INFORMATION
  Report Type: Spontaneous
  Country: US (occurrence: US)
  Receive Date: 20181223
  Receipt Date: 20181223
  Transmission Date: 20190205
  Serious: No
  Sender: FDA-Public Use
  Company Number: US-DRREDDYS-USA/USA/18/0106321

PATIENT
  Age: 53 Year
  Sex: Male

DRUGS (1)
  1. LEVOFLOXACIN TABLETS [Suspect]
     Active Substance: LEVOFLOXACIN
     Indication: CHOLANGITIS ACUTE
     Route: 048

REACTIONS (4)
  - Urticaria [Unknown]
  - Diarrhoea [Unknown]
  - Hypotension [Unknown]
  - Hypersensitivity [Unknown]
